FAERS Safety Report 23692827 (Version 1)
Quarter: 2024Q2

REPORT INFORMATION
  Report Type: Spontaneous
  Country: CN (occurrence: CN)
  Receive Date: 20240401
  Receipt Date: 20240401
  Transmission Date: 20240716
  Serious: Yes (Other)
  Sender: FDA-Public Use
  Company Number: CN-PFIZER INC-PV202400041550

PATIENT
  Age: 51 Year
  Sex: Female
  Weight: 61 kg

DRUGS (2)
  1. CYTARABINE [Suspect]
     Active Substance: CYTARABINE
     Indication: Leukaemia
     Dosage: 4 G, 2X/DAY
     Route: 041
     Dates: start: 20240224, end: 20240225
  2. METHOTREXATE [Concomitant]
     Active Substance: METHOTREXATE
     Indication: Leukaemia
     Dosage: 1600 MG, 1X/DAY
     Route: 041
     Dates: start: 20240223, end: 20240223

REACTIONS (2)
  - Liver injury [Recovering/Resolving]
  - Swelling face [Recovering/Resolving]

NARRATIVE: CASE EVENT DATE: 20240226
